FAERS Safety Report 21480003 (Version 3)
Quarter: 2022Q4

REPORT INFORMATION
  Report Type: Report from Study
  Country: US (occurrence: US)
  Receive Date: 20221019
  Receipt Date: 20221103
  Transmission Date: 20230112
  Serious: Yes (Hospitalization, Other)
  Sender: FDA-Public Use
  Company Number: US-ABBVIE-4166306

PATIENT
  Sex: Female

DRUGS (2)
  1. SKYRIZI [Suspect]
     Active Substance: RISANKIZUMAB-RZAA
     Indication: Psoriasis
     Dosage: WEEK 4, 150 MG
     Route: 058
     Dates: start: 202209
  2. SKYRIZI [Suspect]
     Active Substance: RISANKIZUMAB-RZAA
     Route: 058
     Dates: start: 20220721, end: 2022

REACTIONS (8)
  - Pelvic fracture [Recovering/Resolving]
  - Road traffic accident [Recovering/Resolving]
  - Injection site bruising [Unknown]
  - Psoriasis [Unknown]
  - Lower limb fracture [Recovering/Resolving]
  - Wrist fracture [Recovering/Resolving]
  - Ligament rupture [Recovering/Resolving]
  - Rehabilitation therapy [Unknown]

NARRATIVE: CASE EVENT DATE: 20220101
